FAERS Safety Report 5694286-3 (Version None)
Quarter: 2008Q2

REPORT INFORMATION
  Report Type: 
  Country: None (occurrence: None)
  Receive Date: 20080404
  Receipt Date: 20080331
  Transmission Date: 20081010
  Serious: Yes (Hospitalization)
  Sender: FDA-Public Use
  Company Number: US-JNJFOC-20080400518

PATIENT
  Sex: Male
  Weight: 63.5 kg

DRUGS (6)
  1. PROPULSID [Suspect]
     Route: 048
  2. PROPULSID [Suspect]
     Indication: GASTRIC DISORDER
     Route: 048
  3. DARVOCET [Concomitant]
     Indication: PAIN
     Route: 048
  4. VALIUM [Concomitant]
     Indication: MUSCLE SPASMS
     Route: 065
  5. TYLENOL (CAPLET) [Concomitant]
     Indication: PAIN
     Route: 065
  6. ERYTHROMYCIN [Concomitant]
     Route: 065

REACTIONS (2)
  - CEREBROVASCULAR ACCIDENT [None]
  - MYOCARDIAL INFARCTION [None]
